FAERS Safety Report 6699953-0 (Version None)
Quarter: 2010Q2

REPORT INFORMATION
  Report Type: 
  Country: None (occurrence: None)
  Receive Date: 20100428
  Receipt Date: 20100419
  Transmission Date: 20101027
  Serious: Yes (Other)
  Sender: FDA-Public Use
  Company Number: PHHY2010JP25562

PATIENT
  Age: 11 Year
  Sex: Female

DRUGS (2)
  1. ZADITEN [Suspect]
     Indication: RHINITIS ALLERGIC
     Dosage: 2.0 G DAILY
     Route: 048
     Dates: start: 20100401
  2. ANYRUME [Concomitant]
     Dosage: 2.4 MG
     Route: 048
     Dates: start: 20100331

REACTIONS (6)
  - ALANINE AMINOTRANSFERASE INCREASED [None]
  - ASPARTATE AMINOTRANSFERASE INCREASED [None]
  - HEPATIC ENZYME INCREASED [None]
  - PLATELET COUNT DECREASED [None]
  - RASH [None]
  - VIRAL INFECTION [None]
